FAERS Safety Report 4582607-4 (Version None)
Quarter: 2005Q1

REPORT INFORMATION
  Report Type: 
  Country: None (occurrence: None)
  Receive Date: 20050211
  Receipt Date: 20050211
  Transmission Date: 20050727
  Serious: Yes (Other)
  Sender: FDA-Public Use
  Company Number: None

PATIENT
  Age: 30 Year
  Sex: Female
  Weight: 70.7611 kg

DRUGS (1)
  1. VALPROIC ACID [Suspect]
     Dosage: 2000 MG QD ORAL
     Route: 048

REACTIONS (1)
  - GASTRIC DISORDER [None]
